FAERS Safety Report 18171162 (Version 1)
Quarter: 2020Q3

REPORT INFORMATION
  Report Type: Spontaneous
  Country: US (occurrence: US)
  Receive Date: 20200819
  Receipt Date: 20200819
  Transmission Date: 20201103
  Serious: No
  Sender: FDA-Public Use
  Company Number: US-OREXO US, INC.-ORE202002-000020

PATIENT
  Sex: Male
  Weight: 79.38 kg

DRUGS (7)
  1. ZUBSOLV [Suspect]
     Active Substance: BUPRENORPHINE HYDROCHLORIDE\NALOXONE HYDROCHLORIDE
     Indication: DEPENDENCE
     Dosage: 5.7 MG / 1.4 MG; ONCE A DAY
     Dates: start: 201812
  2. XARELTO [Suspect]
     Active Substance: RIVAROXABAN
  3. TRINTELLIX [Concomitant]
     Active Substance: VORTIOXETINE HYDROBROMIDE
     Indication: DEPRESSION
  4. SOTALOL. [Concomitant]
     Active Substance: SOTALOL
     Dosage: ^STOTAAL^ ENTERED ON THE DATABASE AS PER AE REPORT BUT NO SUCH PRODUCT FOUND.
  5. ZUBSOLV [Suspect]
     Active Substance: BUPRENORPHINE HYDROCHLORIDE\NALOXONE HYDROCHLORIDE
     Dosage: 2.9 MG / 0.71 MG; ONCE A DAY
     Dates: start: 201812
  6. LISINOPRIL. [Concomitant]
     Active Substance: LISINOPRIL
  7. ASPIRIN. [Concomitant]
     Active Substance: ASPIRIN

REACTIONS (4)
  - Nausea [Not Recovered/Not Resolved]
  - Decreased appetite [Not Recovered/Not Resolved]
  - Gastric disorder [Not Recovered/Not Resolved]
  - Abnormal loss of weight [Not Recovered/Not Resolved]
